FAERS Safety Report 11132934 (Version 1)
Quarter: 2015Q2

REPORT INFORMATION
  Report Type: Spontaneous
  Country: CA (occurrence: CA)
  Receive Date: 20150522
  Receipt Date: 20150522
  Transmission Date: 20150821
  Serious: Yes (Hospitalization)
  Sender: FDA-Public Use
  Company Number: CA-APOTEX-2015AP009375

PATIENT
  Age: 44 Year
  Sex: Male

DRUGS (15)
  1. APO-CLOZAPINE [Suspect]
     Active Substance: CLOZAPINE
     Dosage: TITRATED UP TO 400 MG, AT BEDTIME
     Route: 065
     Dates: start: 20130422
  2. APO-CLOZAPINE [Suspect]
     Active Substance: CLOZAPINE
     Indication: MAJOR DEPRESSION
     Dosage: TITRATED UP TO 500 MG DAILY
     Route: 065
     Dates: start: 20120320, end: 20120827
  3. APO-CLOZAPINE [Suspect]
     Active Substance: CLOZAPINE
     Dosage: 200 MG, AT BEDTIME
     Route: 065
     Dates: start: 20120925
  4. APO-CLOZAPINE [Suspect]
     Active Substance: CLOZAPINE
     Dosage: 350 MG, AT BEDTIME
     Route: 065
     Dates: start: 20130423
  5. APO-CLOZAPINE [Suspect]
     Active Substance: CLOZAPINE
     Dosage: 500MG  DAILY; 100MG IN THE MORNING AND 400MG AT BEDTIME
  6. APO-CLOZAPINE [Suspect]
     Active Substance: CLOZAPINE
     Dosage: 200MG IN THE MORNING AND 400MG AT BEDTIME
  7. APO-QUETIAPINE [Suspect]
     Active Substance: QUETIAPINE
     Dosage: 200 MG, AT NIGHT AS NEEDED
     Route: 065
  8. APO-QUETIAPINE [Suspect]
     Active Substance: QUETIAPINE
     Dosage: 100 MG, Q.2H WHEN NEEDED
     Route: 065
  9. APO-CLOZAPINE [Suspect]
     Active Substance: CLOZAPINE
     Dosage: 25 MG, AT BEDTIME
     Route: 065
     Dates: start: 20130403
  10. VENLAFAXINE [Concomitant]
     Active Substance: VENLAFAXINE HYDROCHLORIDE
     Dosage: 300 MG, DAILY
     Route: 065
  11. APO-CLOZAPINE [Suspect]
     Active Substance: CLOZAPINE
     Dosage: 400 MG, AT BEDTIME
     Route: 065
     Dates: start: 20130424
  12. APO-QUETIAPINE [Suspect]
     Active Substance: QUETIAPINE
     Indication: MAJOR DEPRESSION
     Dosage: 50 MG, QID
     Route: 065
  13. VENLAFAXINE [Concomitant]
     Active Substance: VENLAFAXINE HYDROCHLORIDE
     Indication: DEPRESSION
     Dosage: 225 MG, DAILY
     Route: 065
  14. APO-CLOZAPINE [Suspect]
     Active Substance: CLOZAPINE
     Dosage: TITRATED UP TO 500 MG DAILY
     Route: 065
  15. OLANZAPINE. [Concomitant]
     Active Substance: OLANZAPINE
     Indication: MAJOR DEPRESSION
     Dosage: 20 MG, DAILY
     Route: 065

REACTIONS (8)
  - Product use issue [Unknown]
  - Gastric infection [Recovered/Resolved]
  - Retching [Unknown]
  - Pain [Recovering/Resolving]
  - Rebound effect [Unknown]
  - Salivary hypersecretion [Unknown]
  - Constipation [Unknown]
  - Abdominal pain [Unknown]
